FAERS Safety Report 6732666-5 (Version None)
Quarter: 2010Q2

REPORT INFORMATION
  Report Type: 
  Country: None (occurrence: None)
  Receive Date: 20100519
  Receipt Date: 20090504
  Transmission Date: 20101027
  Serious: No
  Sender: FDA-Public Use
  Company Number: US-BRISTOL-MYERS SQUIBB COMPANY-14610315

PATIENT
  Age: 43 Year
  Sex: Male
  Weight: 61 kg

DRUGS (1)
  1. BARACLUDE [Suspect]
     Indication: HEPATITIS B
     Dates: start: 20090215

REACTIONS (4)
  - BACK PAIN [None]
  - FATIGUE [None]
  - HYPOAESTHESIA [None]
  - RENAL DISORDER [None]
